FAERS Safety Report 21445849 (Version 1)
Quarter: 2022Q4

REPORT INFORMATION
  Report Type: Spontaneous
  Country: US (occurrence: US)
  Receive Date: 20221012
  Receipt Date: 20221012
  Transmission Date: 20230113
  Serious: Yes (Other)
  Sender: FDA-Public Use
  Company Number: US-MYLANLABS-2022M1111220

PATIENT
  Age: 68 Year
  Sex: Male
  Weight: 108.84 kg

DRUGS (10)
  1. HYDROCHLOROTHIAZIDE\VALSARTAN [Suspect]
     Active Substance: HYDROCHLOROTHIAZIDE\VALSARTAN
     Indication: Hypertension
     Dosage: UNK (160-12.5 MG)
     Route: 065
     Dates: start: 20121024, end: 20130329
  2. HYDROCHLOROTHIAZIDE\VALSARTAN [Suspect]
     Active Substance: HYDROCHLOROTHIAZIDE\VALSARTAN
     Indication: Hypertension
     Dosage: UNK (160-12.5MG)
     Route: 065
     Dates: start: 20130606, end: 20151117
  3. HYDROCHLOROTHIAZIDE\VALSARTAN [Suspect]
     Active Substance: HYDROCHLOROTHIAZIDE\VALSARTAN
     Indication: Hypertension
     Dosage: UNK (80-12.5 MG)
     Route: 065
     Dates: start: 20151214, end: 20160117
  4. VALSARTAN [Suspect]
     Active Substance: VALSARTAN
     Indication: Hypertension
     Dosage: 160 MILLIGRAM
     Route: 065
     Dates: start: 20180927, end: 20181226
  5. MELOXICAM [Concomitant]
     Active Substance: MELOXICAM
     Indication: Back pain
     Dosage: 15 MILLIGRAM, QD (15 MG/ONCE DAILY)
     Route: 065
     Dates: start: 201205, end: 201904
  6. METAXALONE [Concomitant]
     Active Substance: METAXALONE
     Indication: Back pain
     Dosage: 800 MILLIGRAM, PRN (800 MG/ AS NEEDED)
     Route: 065
     Dates: start: 201206
  7. DULOXETINE HYDROCHLORIDE [Concomitant]
     Active Substance: DULOXETINE HYDROCHLORIDE
     Indication: Depression
     Dosage: UNK
     Route: 065
  8. METOPROLOL [Concomitant]
     Active Substance: METOPROLOL
     Indication: Hypertension
     Dosage: UNK
     Route: 065
  9. EZETIMIBE\SIMVASTATIN [Concomitant]
     Active Substance: EZETIMIBE\SIMVASTATIN
     Indication: Hyperlipidaemia
     Dosage: UNK
     Route: 065
  10. FISH OIL [Concomitant]
     Active Substance: FISH OIL
     Dosage: 1 DOSAGE FORM, QD
     Route: 065
     Dates: start: 2006

REACTIONS (1)
  - Prostate cancer [Unknown]

NARRATIVE: CASE EVENT DATE: 20190905
